FAERS Safety Report 15329004 (Version 1)
Quarter: 2018Q3

REPORT INFORMATION
  Report Type: Spontaneous
  Country: GB (occurrence: GB)
  Receive Date: 20180829
  Receipt Date: 20180829
  Transmission Date: 20181010
  Serious: Yes (Other)
  Sender: FDA-Public Use
  Company Number: GB-TEVA-2018-GB-948242

PATIENT

DRUGS (1)
  1. BUMETANIDE. [Suspect]
     Active Substance: BUMETANIDE
     Indication: CARDIAC FAILURE
     Dosage: TOOK LOW DOSE INSTEAD OF PRESCRIBED (INCREASED) DOSE
     Route: 065

REACTIONS (2)
  - Condition aggravated [Recovered/Resolved]
  - Incorrect dose administered [Recovered/Resolved]
